FAERS Safety Report 10175130 (Version 1)
Quarter: 2014Q2

REPORT INFORMATION
  Report Type: Spontaneous
  Country: FR (occurrence: FR)
  Receive Date: 20140515
  Receipt Date: 20140515
  Transmission Date: 20141212
  Serious: Yes (Life-Threatening)
  Sender: FDA-Public Use
  Company Number: PHHY2014FR058654

PATIENT
  Sex: Male

DRUGS (3)
  1. TEGRETOL [Suspect]
     Indication: EPILEPSY
     Dosage: 200 MG, UNK
     Route: 048
     Dates: end: 201312
  2. KARDEGIC [Suspect]
     Indication: HYPERTENSION
     Dosage: 75 MG, QD
     Route: 048
  3. HYTACAND [Suspect]
     Indication: HYPERTENSION
     Dosage: 1 DF, QD (8/12.5 MG)

REACTIONS (1)
  - Emphysema [Not Recovered/Not Resolved]
